FAERS Safety Report 21671848 (Version 1)
Quarter: 2022Q4

REPORT INFORMATION
  Report Type: Spontaneous
  Country: CN (occurrence: CN)
  Receive Date: 20221202
  Receipt Date: 20221202
  Transmission Date: 20230113
  Serious: Yes (Congenital Anomaly, Other)
  Sender: FDA-Public Use
  Company Number: CN-UCBSA-2022068172

PATIENT
  Sex: Male
  Weight: 2.5 kg

DRUGS (3)
  1. CIMZIA [Suspect]
     Active Substance: CERTOLIZUMAB PEGOL
     Indication: Ankylosing spondylitis
     Dosage: 200 MILLIGRAM, MONTHLY (QM)
     Route: 064
     Dates: start: 20220308, end: 20220922
  2. CHLOROQUINE [Concomitant]
     Active Substance: CHLOROQUINE
     Indication: Product used for unknown indication
     Dosage: 2 DOSAGE FORM, 2X/DAY (BID)
     Route: 064
  3. ASPIRIN [Concomitant]
     Active Substance: ASPIRIN
     Indication: Product used for unknown indication
     Dosage: 1 DOSAGE FORM, ONCE DAILY (QD)
     Route: 064

REACTIONS (2)
  - Heart disease congenital [Unknown]
  - Maternal exposure during pregnancy [Unknown]

NARRATIVE: CASE EVENT DATE: 20220101
